FAERS Safety Report 8502348-8 (Version None)
Quarter: 2012Q3

REPORT INFORMATION
  Report Type: 
  Country: None (occurrence: None)
  Receive Date: 20120711
  Receipt Date: 20120625
  Transmission Date: 20120928
  Serious: No
  Sender: FDA-Public Use
  Company Number: CA-JNJFOC-20120613893

PATIENT
  Sex: Female
  Weight: 96 kg

DRUGS (5)
  1. IMURAN [Concomitant]
     Route: 065
  2. ALESSE [Concomitant]
     Route: 065
  3. VITAMIN B-12 [Concomitant]
     Route: 065
  4. REMICADE [Suspect]
     Indication: CROHN'S DISEASE
     Route: 042
     Dates: start: 20110901
  5. VITAMIN D [Concomitant]
     Route: 065

REACTIONS (1)
  - SINUSITIS [None]
